FAERS Safety Report 4932823-4 (Version None)
Quarter: 2006Q1

REPORT INFORMATION
  Report Type: 
  Country: None (occurrence: None)
  Receive Date: 20060306
  Receipt Date: 20060221
  Transmission Date: 20060701
  Serious: Yes (Hospitalization)
  Sender: FDA-Public Use
  Company Number: CA-AMGEN-US169748

PATIENT
  Sex: Female

DRUGS (9)
  1. DARBEPOETIN ALFA [Suspect]
     Indication: ANAEMIA OF MALIGNANT DISEASE
     Route: 058
     Dates: start: 20050921, end: 20060215
  2. TAXOL [Concomitant]
     Dates: start: 20051102, end: 20060104
  3. DOXORUBICIN HCL [Concomitant]
     Dates: start: 20050810, end: 20051012
  4. TYLENOL (CAPLET) [Concomitant]
  5. LEVAQUIN [Concomitant]
  6. TRAZODONE [Concomitant]
     Route: 048
  7. LASIX [Concomitant]
  8. ARIMIDEX [Concomitant]
     Route: 048
  9. ATIVAN [Concomitant]

REACTIONS (2)
  - BLOOD GLUCOSE INCREASED [None]
  - MYOCARDIAL INFARCTION [None]
